FAERS Safety Report 7780946-7 (Version None)
Quarter: 2011Q3

REPORT INFORMATION
  Report Type: 
  Country: None (occurrence: None)
  Receive Date: 20110927
  Receipt Date: 20110915
  Transmission Date: 20111222
  Serious: Yes (Other)
  Sender: FDA-Public Use
  Company Number: US-AMGEN-USASP2011044469

PATIENT
  Age: 65 Year
  Sex: Male
  Weight: 70.748 kg

DRUGS (14)
  1. ENBREL [Suspect]
     Indication: RHEUMATOID ARTHRITIS
     Dosage: 50 MG, QWK
     Route: 058
     Dates: start: 20110628, end: 20110827
  2. ENBREL [Suspect]
     Dosage: 50 MG, UNK
     Route: 058
     Dates: start: 20110329, end: 20110628
  3. PREDNISONE [Concomitant]
     Dosage: 5 MG, UNK
     Dates: start: 20080501, end: 20100217
  4. MULTI-VITAMINS [Concomitant]
  5. FOLIC ACID [Concomitant]
     Dosage: 1 MG, UNK
     Dates: start: 20080501
  6. MEDROL [Concomitant]
     Dosage: 4 MG, UNK
     Dates: start: 20080501
  7. ENBREL [Suspect]
     Dosage: 50 MG, QWK
     Route: 058
     Dates: start: 20100101, end: 20101130
  8. VITAMIN B12                        /00056201/ [Concomitant]
  9. ADVIL LIQUI-GELS [Concomitant]
     Dosage: 200 MG, PRN
  10. METHOTREXATE [Suspect]
     Dosage: 2.5 MG, UNK
     Dates: start: 20080501, end: 20110628
  11. CALCIUM CARBONATE [Concomitant]
  12. ENBREL [Suspect]
     Dosage: 50 MG, Q2WK
     Route: 058
     Dates: start: 20101130, end: 20110329
  13. VOLTAREN [Concomitant]
     Dosage: 7.5 MG, UNK
     Dates: start: 20080410, end: 20100727
  14. LASIX [Concomitant]
     Dosage: 40 MG, UNK
     Dates: start: 20080410

REACTIONS (23)
  - PROGRESSIVE MULTIFOCAL LEUKOENCEPHALOPATHY [None]
  - JOINT RANGE OF MOTION DECREASED [None]
  - DISTURBANCE IN ATTENTION [None]
  - RESTLESS LEGS SYNDROME [None]
  - DEPRESSION [None]
  - FALL [None]
  - MUSCULOSKELETAL STIFFNESS [None]
  - BLOOD BILIRUBIN INCREASED [None]
  - GAIT DISTURBANCE [None]
  - SYNOVITIS [None]
  - MEMORY IMPAIRMENT [None]
  - OSTEOARTHRITIS [None]
  - DEMYELINATION [None]
  - DIZZINESS [None]
  - FATIGUE [None]
  - HYPOAESTHESIA [None]
  - NODULE [None]
  - PARAESTHESIA [None]
  - ATAXIA [None]
  - RHEUMATOID ARTHRITIS [None]
  - TIC [None]
  - CEREBRAL ISCHAEMIA [None]
  - EXOSTOSIS [None]
